FAERS Safety Report 7489592-6 (Version None)
Quarter: 2011Q2

REPORT INFORMATION
  Report Type: 
  Country: None (occurrence: None)
  Receive Date: 20110519
  Receipt Date: 20110510
  Transmission Date: 20111010
  Serious: Yes (Other)
  Sender: FDA-Public Use
  Company Number: CA-BIOGENIDEC-2011BI015071

PATIENT
  Age: 39 Year
  Sex: Male

DRUGS (1)
  1. AVONEX [Suspect]
     Indication: MULTIPLE SCLEROSIS
     Route: 030
     Dates: start: 20050404

REACTIONS (5)
  - DIZZINESS [None]
  - FATIGUE [None]
  - CARDIAC VENTRICULAR DISORDER [None]
  - SOMNOLENCE [None]
  - HEADACHE [None]
